FAERS Safety Report 5278032-3 (Version None)
Quarter: 2007Q1

REPORT INFORMATION
  Report Type: 
  Country: None (occurrence: None)
  Receive Date: 20070321
  Receipt Date: 20070312
  Transmission Date: 20070707
  Serious: Yes (Life-Threatening, Hospitalization)
  Sender: FDA-Public Use
  Company Number: 2007AL001009

PATIENT
  Age: 31 Year
  Sex: Female

DRUGS (8)
  1. IBUPROFEN [Suspect]
     Indication: PAIN
     Dosage: 600 MG; TID; PO
     Route: 048
     Dates: start: 20060802, end: 20060814
  2. PREDNISONE [Suspect]
     Indication: HEPATITIS
     Dosage: 40 MG; QD; UNKNOWN
     Dates: start: 20060612, end: 20060618
  3. BENZODIAZEPINES [Concomitant]
  4. THIAMINE [Concomitant]
  5. FOLIC ACID [Concomitant]
  6. LACTULOSE [Concomitant]
  7. PREDNISOLONE [Concomitant]
  8. SPIRONOLACTONE [Concomitant]

REACTIONS (4)
  - DUODENAL ULCER [None]
  - ENCEPHALOPATHY [None]
  - HAEMATEMESIS [None]
  - MELAENA [None]
